FAERS Safety Report 14647801 (Version 1)
Quarter: 2018Q1

REPORT INFORMATION
  Report Type: Spontaneous
  Country: US (occurrence: US)
  Receive Date: 20180316
  Receipt Date: 20180316
  Transmission Date: 20180509
  Serious: No
  Sender: FDA-Public Use
  Company Number: US-PFIZER INC-2018107959

PATIENT
  Age: 74 Year
  Sex: Female
  Weight: 81.63 kg

DRUGS (1)
  1. LORATADINE. [Suspect]
     Active Substance: LORATADINE
     Dosage: UNK

REACTIONS (1)
  - Drug effect delayed [Unknown]
